FAERS Safety Report 12162175 (Version 1)
Quarter: 2016Q1

REPORT INFORMATION
  Report Type: Spontaneous
  Country: US (occurrence: None)
  Receive Date: 20160308
  Receipt Date: 20160308
  Transmission Date: 20160526
  Serious: Yes (Hospitalization)
  Sender: FDA-Public Use
  Company Number: None

PATIENT
  Age: 49 Year
  Sex: Female
  Weight: 43.3 kg

DRUGS (2)
  1. VERSED [Suspect]
     Active Substance: MIDAZOLAM HYDROCHLORIDE
     Indication: SEDATION
     Dosage: 3 MG OTD IV
     Route: 042
     Dates: start: 20150521, end: 20150522
  2. LORAZEPAM. [Suspect]
     Active Substance: LORAZEPAM
     Indication: PRODUCT USED FOR UNKNOWN INDICATION
     Dosage: 0.5 MG IV 0206; 1 MG PO 1128, 1749 PO
     Route: 042
     Dates: start: 20150521, end: 20150522

REACTIONS (3)
  - Dyspnoea [None]
  - Respiratory acidosis [None]
  - Lethargy [None]

NARRATIVE: CASE EVENT DATE: 20150521
